FAERS Safety Report 24610318 (Version 8)
Quarter: 2025Q4

REPORT INFORMATION
  Report Type: Spontaneous
  Country: CA (occurrence: CA)
  Receive Date: 20241112
  Receipt Date: 20251022
  Transmission Date: 20260118
  Serious: Yes (Life-Threatening, Hospitalization, Other)
  Sender: MYLAN
  Company Number: CA-MYLANLABS-2024M1079479

PATIENT
  Age: 30 Year
  Sex: Male

DRUGS (110)
  1. GABAPENTIN [Suspect]
     Active Substance: GABAPENTIN
     Indication: Guillain-Barre syndrome
     Dosage: 900 MILLIGRAM, QD (1 EVERY 1 DAYS)
  2. GABAPENTIN [Suspect]
     Active Substance: GABAPENTIN
     Indication: Neuralgia
     Dosage: 3600 MILLIGRAM, QD (1 EVERY 1 DAYS)
  3. GABAPENTIN [Suspect]
     Active Substance: GABAPENTIN
     Indication: Acute respiratory failure
     Dosage: 3600 MILLIGRAM
  4. GABAPENTIN [Suspect]
     Active Substance: GABAPENTIN
     Dosage: 1200 MILLIGRAM, QD (1 EVERY 1 DAYS)
  5. GABAPENTIN [Suspect]
     Active Substance: GABAPENTIN
     Dosage: 1800 MILLIGRAM, QD (1 EVERY 1 DAYS)
  6. GABAPENTIN [Suspect]
     Active Substance: GABAPENTIN
     Dosage: 3900 MILLIGRAM
  7. GABAPENTIN [Suspect]
     Active Substance: GABAPENTIN
     Dosage: 1200 MILLIGRAM
  8. GABAPENTIN [Suspect]
     Active Substance: GABAPENTIN
     Dosage: 300 MILLIGRAM
  9. GABAPENTIN [Suspect]
     Active Substance: GABAPENTIN
     Dosage: UNK
  10. GABAPENTIN [Suspect]
     Active Substance: GABAPENTIN
     Dosage: UNK
  11. GABAPENTIN [Suspect]
     Active Substance: GABAPENTIN
     Dosage: 300 MILLIGRAM, QD (1 EVERY 1 DAYS)
  12. GABAPENTIN [Suspect]
     Active Substance: GABAPENTIN
     Dosage: 3600 MILLIGRAM, QD (1 EVERY 1 DAYS)
  13. GABAPENTIN [Suspect]
     Active Substance: GABAPENTIN
     Dosage: 900 MILLIGRAM
  14. VENLAFAXINE [Suspect]
     Active Substance: VENLAFAXINE HYDROCHLORIDE
     Indication: Product used for unknown indication
     Dosage: 75 MILLIGRAM
  15. VENLAFAXINE [Suspect]
     Active Substance: VENLAFAXINE HYDROCHLORIDE
     Dosage: UNK
  16. VENLAFAXINE HYDROCHLORIDE [Suspect]
     Active Substance: VENLAFAXINE HYDROCHLORIDE
     Indication: Neuralgia
     Dosage: UNK
  17. VENLAFAXINE HYDROCHLORIDE [Suspect]
     Active Substance: VENLAFAXINE HYDROCHLORIDE
     Indication: Guillain-Barre syndrome
  18. VENLAFAXINE HYDROCHLORIDE [Suspect]
     Active Substance: VENLAFAXINE HYDROCHLORIDE
     Indication: Neuralgia
     Dosage: UNK
  19. VENLAFAXINE HYDROCHLORIDE [Suspect]
     Active Substance: VENLAFAXINE HYDROCHLORIDE
     Indication: Guillain-Barre syndrome
  20. PHENYTOIN [Suspect]
     Active Substance: PHENYTOIN
     Indication: Neuralgia
     Dosage: 1500 MILLIGRAM, QD (1 EVERY 1 DAYS)
  21. PHENYTOIN [Suspect]
     Active Substance: PHENYTOIN
     Dosage: 1500 MILLIGRAM
  22. PHENYTOIN [Suspect]
     Active Substance: PHENYTOIN
     Dosage: UNK
  23. PHENYTOIN [Suspect]
     Active Substance: PHENYTOIN
     Dosage: UNK
  24. VENLAFAXINE HCL [Suspect]
     Active Substance: VENLAFAXINE HYDROCHLORIDE
     Indication: Neuralgia
     Dosage: 75 MILLIGRAM
  25. OLANZAPINE [Suspect]
     Active Substance: OLANZAPINE
     Indication: Guillain-Barre syndrome
     Dosage: 3 MILLIGRAM, QD (1 EVERY 1 DAYS)
  26. OLANZAPINE [Suspect]
     Active Substance: OLANZAPINE
     Indication: Neuralgia
     Dosage: 2.5 MILLIGRAM, QD (1 EVERY 1 DAYS)
  27. OLANZAPINE [Suspect]
     Active Substance: OLANZAPINE
     Indication: Pain
     Dosage: 2.5 MILLIGRAM
  28. OLANZAPINE [Suspect]
     Active Substance: OLANZAPINE
     Dosage: UNK
  29. OLANZAPINE [Suspect]
     Active Substance: OLANZAPINE
     Dosage: 3 MILLIGRAM
  30. LIDOCAINE [Suspect]
     Active Substance: LIDOCAINE
     Indication: Guillain-Barre syndrome
     Dosage: 3.84 MILLIGRAM, QH (1 EVERY 1 HOURS)
  31. LIDOCAINE [Suspect]
     Active Substance: LIDOCAINE
     Indication: Neuralgia
     Dosage: UNK
  32. LIDOCAINE [Suspect]
     Active Substance: LIDOCAINE
     Indication: Pain
     Dosage: UNK
  33. ACETAMINOPHEN [Suspect]
     Active Substance: ACETAMINOPHEN
     Indication: Guillain-Barre syndrome
     Dosage: 3900 MILLIGRAM, QD (1 EVERY 1 DAYS)
  34. ACETAMINOPHEN [Suspect]
     Active Substance: ACETAMINOPHEN
     Indication: Neuralgia
     Dosage: 3900 MILLIGRAM
  35. ACETAMINOPHEN [Suspect]
     Active Substance: ACETAMINOPHEN
     Indication: Pain
     Dosage: 2600 MILLIGRAM
  36. ACETAMINOPHEN [Suspect]
     Active Substance: ACETAMINOPHEN
     Dosage: UNK
  37. ACETAMINOPHEN [Suspect]
     Active Substance: ACETAMINOPHEN
     Dosage: UNK
  38. ACETAMINOPHEN [Suspect]
     Active Substance: ACETAMINOPHEN
     Dosage: 2600 MILLIGRAM, QD ( 1 EVERY 1 DAYS)
  39. DICLOFENAC [Suspect]
     Active Substance: DICLOFENAC
     Indication: Guillain-Barre syndrome
     Dosage: UNK
  40. DICLOFENAC [Suspect]
     Active Substance: DICLOFENAC
     Indication: Neuralgia
  41. DICLOFENAC [Suspect]
     Active Substance: DICLOFENAC
     Indication: Pain
  42. DILAUDID [Suspect]
     Active Substance: HYDROMORPHONE HYDROCHLORIDE
     Indication: Guillain-Barre syndrome
     Dosage: 30 MILLIGRAM, QD (1 EVERY 1 DAYS)
  43. DILAUDID [Suspect]
     Active Substance: HYDROMORPHONE HYDROCHLORIDE
     Indication: Neuralgia
     Dosage: 1 MILLIGRAM
  44. DILAUDID [Suspect]
     Active Substance: HYDROMORPHONE HYDROCHLORIDE
     Indication: Pain
     Dosage: 30 MILLIGRAM
  45. DILAUDID [Suspect]
     Active Substance: HYDROMORPHONE HYDROCHLORIDE
     Dosage: 7 MILLIGRAM
  46. DILAUDID [Suspect]
     Active Substance: HYDROMORPHONE HYDROCHLORIDE
     Dosage: 7 MILLIGRAM, QD (1 EVERY 1 DAYS)
  47. DILAUDID [Suspect]
     Active Substance: HYDROMORPHONE HYDROCHLORIDE
     Dosage: UNK
  48. FENTANYL [Suspect]
     Active Substance: FENTANYL
     Indication: Guillain-Barre syndrome
     Dosage: 25 MICROGRAM, QH (1 EVERY 1 HOURS)
  49. FENTANYL [Suspect]
     Active Substance: FENTANYL
     Indication: Neuralgia
     Dosage: UNK
  50. FENTANYL [Suspect]
     Active Substance: FENTANYL
     Indication: Pain
     Dosage: 37.5 MILLIGRAM, QH (1 EVERY 1 HOURS)
  51. FENTANYL [Suspect]
     Active Substance: FENTANYL
     Dosage: UNK
  52. FENTANYL [Suspect]
     Active Substance: FENTANYL
     Dosage: 37.5 MILLIGRAM
  53. FENTANYL [Suspect]
     Active Substance: FENTANYL
     Dosage: 25 MILLIGRAM
  54. FENTANYL [Suspect]
     Active Substance: FENTANYL
     Dosage: 37.5 MILLIGRAM, QD (1 EVERY 1 DAYS)
  55. FENTANYL [Suspect]
     Active Substance: FENTANYL
     Indication: Neuralgia
     Dosage: UNK
  56. FENTANYL [Suspect]
     Active Substance: FENTANYL
     Indication: Pain
     Dosage: 25 MICROGRAM, QH (1 EVERY 1 HOURS)
  57. FENTANYL [Suspect]
     Active Substance: FENTANYL
     Indication: Guillain-Barre syndrome
     Dosage: 25 MICROGRAM, QH (1 EVERY 1 HOURS)
  58. HYDROMORPHONE [Suspect]
     Active Substance: HYDROMORPHONE
     Indication: Guillain-Barre syndrome
     Dosage: 1 MILLIGRAM
  59. HYDROMORPHONE [Suspect]
     Active Substance: HYDROMORPHONE
     Indication: Neuralgia
     Dosage: UNK
  60. HYDROMORPHONE [Suspect]
     Active Substance: HYDROMORPHONE
     Dosage: UNK
  61. HYDROMORPHONE [Suspect]
     Active Substance: HYDROMORPHONE
     Dosage: 7 MILLIGRAM, QD (1 EVERY 1 DAYS)
  62. HYDROMORPHONE [Suspect]
     Active Substance: HYDROMORPHONE
     Dosage: 30 MILLIGRAM
  63. IBUPROFEN [Suspect]
     Active Substance: IBUPROFEN
     Indication: Guillain-Barre syndrome
     Dosage: 1600 MILLIGRAM, QD (1 EVERY 1 DAYS)
  64. IBUPROFEN [Suspect]
     Active Substance: IBUPROFEN
     Indication: Neuralgia
     Dosage: UNK
  65. IBUPROFEN [Suspect]
     Active Substance: IBUPROFEN
     Indication: Acute respiratory failure
     Dosage: 1600 MILLIGRAM
  66. KETAMINE [Suspect]
     Active Substance: KETAMINE
     Indication: Guillain-Barre syndrome
     Dosage: 40 MILLIGRAM, QD (1 EVERY 1 DAYS)
  67. KETAMINE [Suspect]
     Active Substance: KETAMINE
     Indication: Neuralgia
     Dosage: 40 MILLIGRAM
  68. KETAMINE [Suspect]
     Active Substance: KETAMINE
     Dosage: 30 MILLIGRAM
  69. KETAMINE [Suspect]
     Active Substance: KETAMINE
     Dosage: 30 MILLIGRAM, QD (1 EVERY 1 DAY)
  70. KETAMINE [Suspect]
     Active Substance: KETAMINE
     Dosage: UNK
  71. KETAMINE [Suspect]
     Active Substance: KETAMINE
     Dosage: UNK
  72. KETAMINE [Suspect]
     Active Substance: KETAMINE
     Dosage: 30 MILLIGRAM, QD (1 EVERY 1 DAY)
  73. NABILONE [Suspect]
     Active Substance: NABILONE
     Indication: Guillain-Barre syndrome
     Dosage: 2 MILLIGRAM, QD (1 EVERY 1 DAYS)
  74. NABILONE [Suspect]
     Active Substance: NABILONE
     Indication: Neuralgia
     Dosage: 6 MILLIGRAM, QD (1 EVERY 1 DAYS)
  75. NABILONE [Suspect]
     Active Substance: NABILONE
     Indication: Pain
     Dosage: 6 MILLIGRAM
  76. NABILONE [Suspect]
     Active Substance: NABILONE
     Dosage: UNK
  77. NABILONE [Suspect]
     Active Substance: NABILONE
     Dosage: UNK
  78. NABILONE [Suspect]
     Active Substance: NABILONE
     Dosage: 8 MILLIGRAM
  79. NABILONE [Suspect]
     Active Substance: NABILONE
     Dosage: 8 MILLIGRAM
  80. ZOPICLONE [Suspect]
     Active Substance: ZOPICLONE
     Indication: Guillain-Barre syndrome
     Dosage: 7.5 MILLIGRAM
  81. ZOPICLONE [Suspect]
     Active Substance: ZOPICLONE
     Indication: Neuralgia
     Dosage: UNK
  82. ZOPICLONE [Suspect]
     Active Substance: ZOPICLONE
     Dosage: UNK
  83. DICLOFENAC [Suspect]
     Active Substance: DICLOFENAC
     Indication: Pain
     Dosage: UNK
  84. DICLOFENAC [Suspect]
     Active Substance: DICLOFENAC
     Indication: Neuralgia
  85. DICLOFENAC [Suspect]
     Active Substance: DICLOFENAC
     Indication: Guillain-Barre syndrome
  86. HUMAN IMMUNOGLOBULIN G [Suspect]
     Active Substance: HUMAN IMMUNOGLOBULIN G
     Indication: Guillain-Barre syndrome
     Dosage: 400 MILLIGRAM/KILOGRAM
  87. HUMAN IMMUNOGLOBULIN G [Suspect]
     Active Substance: HUMAN IMMUNOGLOBULIN G
     Dosage: UNK
  88. HUMAN IMMUNOGLOBULIN G [Suspect]
     Active Substance: HUMAN IMMUNOGLOBULIN G
     Dosage: 400 MILLIGRAM/KILOGRAM
  89. VOLTAREN [Suspect]
     Active Substance: DICLOFENAC SODIUM
     Indication: Product used for unknown indication
     Dosage: UNK
  90. HYDROMORPHONE HYDROCHLORIDE [Suspect]
     Active Substance: HYDROMORPHONE HYDROCHLORIDE
     Indication: Neuralgia
     Dosage: UNK
  91. HYDROMORPHONE HYDROCHLORIDE [Suspect]
     Active Substance: HYDROMORPHONE HYDROCHLORIDE
     Dosage: 1 MILLIGRAM
  92. HYDROMORPHONE HYDROCHLORIDE [Suspect]
     Active Substance: HYDROMORPHONE HYDROCHLORIDE
     Dosage: 1 MILLIGRAM
  93. HYDROMORPHONE HYDROCHLORIDE [Suspect]
     Active Substance: HYDROMORPHONE HYDROCHLORIDE
     Dosage: 7 MILLIGRAM
  94. KETAMINE HYDROCHLORIDE [Suspect]
     Active Substance: KETAMINE HYDROCHLORIDE
     Indication: Neuralgia
     Dosage: 40 MILLIGRAM
  95. KETAMINE HYDROCHLORIDE [Suspect]
     Active Substance: KETAMINE HYDROCHLORIDE
     Dosage: UNK
  96. LIDOCAINE [Suspect]
     Active Substance: LIDOCAINE
     Indication: Neuralgia
     Dosage: 3.84 MILLIGRAM
  97. LIDOCAINE [Suspect]
     Active Substance: LIDOCAINE
     Indication: Pain
     Dosage: UNK
  98. LIDOCAINE [Suspect]
     Active Substance: LIDOCAINE
     Indication: Guillain-Barre syndrome
     Dosage: 3.84 MILLIGRAM, QD (1 EVERY 1 DAYS)
  99. LIDOCAINE [Suspect]
     Active Substance: LIDOCAINE
     Dosage: 3.84 MILLIGRAM
  100. DICLOFENAC SODIUM [Suspect]
     Active Substance: DICLOFENAC SODIUM
     Indication: Neuralgia
     Dosage: UNK
  101. CHILDRENS IBUPROFEN [Suspect]
     Active Substance: IBUPROFEN
     Indication: Neuralgia
     Dosage: UNK
  102. ACETAMINOPHEN [Suspect]
     Active Substance: ACETAMINOPHEN
     Indication: Neuralgia
     Dosage: 3900 MILLIGRAM, QD (1 EVERY 1 DAYS)
  103. ACETAMINOPHEN [Suspect]
     Active Substance: ACETAMINOPHEN
     Indication: Pain
     Dosage: UNK
  104. ACETAMINOPHEN [Suspect]
     Active Substance: ACETAMINOPHEN
     Indication: Guillain-Barre syndrome
     Dosage: 2600 MILLIGRAM, QD (1 EVERY 1 DAY)
  105. ACETAMINOPHEN [Suspect]
     Active Substance: ACETAMINOPHEN
     Dosage: 3900 MILLIGRAM
  106. ACETAMINOPHEN [Suspect]
     Active Substance: ACETAMINOPHEN
     Indication: Neuralgia
     Dosage: 3900 MILLIGRAM
  107. BUPIVACAINE [Concomitant]
     Active Substance: BUPIVACAINE
     Indication: Neuralgia
     Dosage: UNK
  108. MORPHINE [Concomitant]
     Active Substance: MORPHINE
     Indication: Neuralgia
     Dosage: UNK
  109. NORTRIPTYLINE [Concomitant]
     Active Substance: NORTRIPTYLINE
     Indication: Neuralgia
     Dosage: 35 MILLIGRAM, QD (1 EVERY 1 DAYS)
  110. NORTRIPTYLINE [Concomitant]
     Active Substance: NORTRIPTYLINE
     Dosage: UNK

REACTIONS (6)
  - Inspiratory capacity decreased [Unknown]
  - Therapy non-responder [Unknown]
  - Drug ineffective [Unknown]
  - Off label use [Unknown]
  - Drug ineffective for unapproved indication [Unknown]
  - Incorrect dose administered [Unknown]
